FAERS Safety Report 17163907 (Version 3)
Quarter: 2020Q1

REPORT INFORMATION
  Report Type: Spontaneous
  Country: FR (occurrence: FR)
  Receive Date: 20191217
  Receipt Date: 20200206
  Transmission Date: 20200409
  Serious: Yes (Death, Life-Threatening, Hospitalization, Other)
  Sender: FDA-Public Use
  Company Number: FR-SA-2019SA345960

PATIENT
  Age: 75 Year
  Sex: Female

DRUGS (4)
  1. IRINOTECAN [Suspect]
     Active Substance: IRINOTECAN
     Indication: COLON CANCER
  2. 5-FLUOROURACIL [FLUOROURACIL SODIUM] [Suspect]
     Active Substance: FLUOROURACIL SODIUM
     Indication: COLON CANCER
     Dosage: INITIALLY WITH OXALIPLATIN THEN WITH IRINOTECAN
     Route: 065
  3. OXALIPLATIN. [Suspect]
     Active Substance: OXALIPLATIN
     Indication: COLON CANCER
     Dosage: UNK UNK, UNK
     Route: 065
  4. IRINOTECAN [Suspect]
     Active Substance: IRINOTECAN
     Indication: CHEMOTHERAPY
     Dosage: UNK UNK, UNK
     Route: 065

REACTIONS (14)
  - Behaviour disorder [Unknown]
  - Anaemia [Unknown]
  - Asthenia [Unknown]
  - Hyperintensity in brain deep nuclei [Recovering/Resolving]
  - Cerebral disorder [Recovering/Resolving]
  - Hypometabolism [Unknown]
  - Thrombocytopenia [Unknown]
  - Coma [Fatal]
  - Acute myeloid leukaemia [Fatal]
  - Haemoglobinaemia [Unknown]
  - Dyspnoea exertional [Unknown]
  - Limbic encephalitis [Fatal]
  - Neutropenia [Unknown]
  - Hallucination, auditory [Unknown]
